FAERS Safety Report 24366618 (Version 1)
Quarter: 2024Q3

REPORT INFORMATION
  Report Type: Spontaneous
  Country: US (occurrence: US)
  Receive Date: 20240926
  Receipt Date: 20240926
  Transmission Date: 20241017
  Serious: Yes (Other)
  Sender: MYLAN
  Company Number: US-MYLANLABS-2024M1084640

PATIENT
  Age: 67 Year
  Sex: Male
  Weight: 95.25 kg

DRUGS (16)
  1. VALSARTAN [Suspect]
     Active Substance: VALSARTAN
     Indication: Hypertension
     Dosage: UNK
     Route: 065
     Dates: start: 20141215, end: 20171102
  2. VALSARTAN [Suspect]
     Active Substance: VALSARTAN
     Dosage: UNK
     Route: 065
     Dates: start: 20171101, end: 20171201
  3. VALSARTAN [Suspect]
     Active Substance: VALSARTAN
     Dosage: UNK
     Route: 065
     Dates: start: 20171129, end: 20171229
  4. TAMSULOSIN [Concomitant]
     Active Substance: TAMSULOSIN
     Indication: Prostatomegaly
     Dosage: 4 MILLIGRAM, BID (TWICE A DAY)
     Route: 048
     Dates: start: 20180225, end: 20220331
  5. AMLODIPINE [Concomitant]
     Active Substance: AMLODIPINE BESYLATE
     Indication: Hypertension
     Dosage: 10 MILLIGRAM, QD (ONCE A DAY)
     Route: 048
     Dates: start: 20090618, end: 20190607
  6. FINASTERIDE [Concomitant]
     Active Substance: FINASTERIDE
     Indication: Prostatomegaly
     Dosage: 5 MILLIGRAM, QD
     Route: 065
     Dates: start: 20201103, end: 20220427
  7. SPIRIVA [Concomitant]
     Active Substance: TIOTROPIUM BROMIDE MONOHYDRATE
     Indication: Asthma
     Dosage: 20 MICROGRAM/L, QD (ONCE A DAY)
     Route: 048
     Dates: start: 20190111, end: 20220222
  8. GABAPENTIN [Concomitant]
     Active Substance: GABAPENTIN
     Indication: Diabetic neuropathy
     Dosage: 600 MILLIGRAM, QD (ONCE A DAY)
     Route: 048
     Dates: start: 20190304, end: 20190603
  9. TELMISARTAN [Concomitant]
     Active Substance: TELMISARTAN
     Indication: Hypertension
     Dosage: 40 MILLIGRAM, BID (TWICE A DAY)
     Route: 065
     Dates: start: 20190403
  10. LEVOTHYROXINE [Concomitant]
     Active Substance: LEVOTHYROXINE\LEVOTHYROXINE SODIUM
     Indication: Hypothyroidism
     Dosage: 100 MICROGRAM, QD (ONCE A DAY)
     Route: 048
     Dates: start: 20180625, end: 20220331
  11. LORAZEPAM [Concomitant]
     Active Substance: LORAZEPAM
     Indication: Anxiety
     Dosage: 1 MILLIGRAM, QD (AS NEEDED)
     Route: 048
     Dates: start: 20180926, end: 20211117
  12. MELOXICAM [Concomitant]
     Active Substance: MELOXICAM
     Indication: Arthritis
     Dosage: 12 MILLIGRAM, QD (ONCE A DAY)
     Route: 048
     Dates: start: 2018
  13. METFORMIN [Concomitant]
     Active Substance: METFORMIN HYDROCHLORIDE
     Indication: Type 2 diabetes mellitus
     Dosage: 1000 MILLIGRAM, BID (TWICE A DAY)
     Route: 048
     Dates: start: 2018
  14. METOPROLOL [Concomitant]
     Active Substance: METOPROLOL
     Indication: Hypertension
     Dosage: 25 MILLIGRAM, QD
     Route: 048
     Dates: start: 20180625, end: 20220331
  15. SIMVASTATIN [Concomitant]
     Active Substance: SIMVASTATIN
     Indication: Blood cholesterol increased
     Dosage: 20 MILLIGRAM, QD (ONCE A DAY)
     Route: 048
     Dates: start: 20070814, end: 20180522
  16. IBUPROFEN [Concomitant]
     Active Substance: IBUPROFEN
     Indication: Analgesic therapy
     Dosage: 200 MILLIGRAM, PRN (AS NEEDED)
     Route: 065

REACTIONS (1)
  - Colon cancer stage III [Unknown]

NARRATIVE: CASE EVENT DATE: 20220104
